FAERS Safety Report 20377506 (Version 1)
Quarter: 2022Q1

REPORT INFORMATION
  Report Type: Spontaneous
  Country: US (occurrence: US)
  Receive Date: 20220126
  Receipt Date: 20220126
  Transmission Date: 20220423
  Serious: Yes (Hospitalization)
  Sender: FDA-Public Use
  Company Number: US-BIOVITRUM-2022US00970

PATIENT
  Sex: Male

DRUGS (3)
  1. SYNAGIS [Suspect]
     Active Substance: PALIVIZUMAB
     Indication: Multiple congenital abnormalities
     Dosage: FREQUENCY: EVERY 28-32 DAYS
     Route: 030
     Dates: start: 20210917
  2. SYNAGIS [Suspect]
     Active Substance: PALIVIZUMAB
     Indication: Sleep apnoea syndrome
  3. SYNAGIS [Suspect]
     Active Substance: PALIVIZUMAB
     Indication: Double outlet right ventricle

REACTIONS (1)
  - COVID-19 [Unknown]
